FAERS Safety Report 7364251-9 (Version None)
Quarter: 2011Q1

REPORT INFORMATION
  Report Type: 
  Country: None (occurrence: None)
  Receive Date: 20110321
  Receipt Date: 20110315
  Transmission Date: 20110831
  Serious: Yes (Hospitalization)
  Sender: FDA-Public Use
  Company Number: A0918296A

PATIENT
  Age: 60 Year
  Sex: Male

DRUGS (5)
  1. VENTOLIN [Suspect]
     Dosage: 2PUFF AS REQUIRED
     Route: 055
  2. DILTIAZEM [Concomitant]
  3. BLOOD PRESSURE MEDICATION [Concomitant]
  4. BENAZEPRIL [Concomitant]
  5. LORTAB [Concomitant]

REACTIONS (1)
  - BRONCHITIS [None]
